FAERS Safety Report 14030274 (Version 1)
Quarter: 2017Q4

REPORT INFORMATION
  Report Type: Report from Study
  Country: None (occurrence: US)
  Receive Date: 20171001
  Receipt Date: 20171001
  Transmission Date: 20180321
  Serious: Yes (Hospitalization, Other)
  Sender: FDA-Public Use
  Company Number: US-ABBVIE-17K-163-2094860-00

PATIENT
  Sex: Male
  Weight: 65.83 kg

DRUGS (1)
  1. HUMIRA [Suspect]
     Active Substance: ADALIMUMAB
     Indication: RHEUMATOID ARTHRITIS
     Route: 058
     Dates: start: 2007

REACTIONS (3)
  - Pulmonary oedema [Unknown]
  - Fall [Unknown]
  - Rib fracture [Recovering/Resolving]

NARRATIVE: CASE EVENT DATE: 2017
